FAERS Safety Report 9735838 (Version 1)
Quarter: 2013Q4

REPORT INFORMATION
  Report Type: Spontaneous
  Country: US (occurrence: US)
  Receive Date: 20131206
  Receipt Date: 20131206
  Transmission Date: 20140711
  Serious: No
  Sender: FDA-Public Use
  Company Number: US-GILEAD-2009-0023858

PATIENT
  Sex: Female

DRUGS (15)
  1. LETAIRIS [Suspect]
     Indication: PULMONARY ARTERIAL HYPERTENSION
     Route: 048
     Dates: start: 20090818, end: 20090903
  2. MEGESTROL [Concomitant]
  3. POTASSIUM [Concomitant]
  4. VITAMIN B12 [Concomitant]
  5. NIACIN [Concomitant]
  6. VITAMIN C [Concomitant]
  7. CALCIUM + D [Concomitant]
  8. L-LYSINE [Concomitant]
  9. ZINC [Concomitant]
  10. VITAMIN E [Concomitant]
  11. B-COMPLEX [Concomitant]
  12. FUROSEMIDE [Concomitant]
  13. PLAQUENIL [Concomitant]
  14. AMLODIPINE [Concomitant]
  15. NEXIUM [Concomitant]

REACTIONS (5)
  - Dry mouth [Unknown]
  - Dry throat [Unknown]
  - Sinus congestion [Unknown]
  - Headache [Unknown]
  - Oedema peripheral [Unknown]
